FAERS Safety Report 22656156 (Version 2)
Quarter: 2024Q1

REPORT INFORMATION
  Report Type: Spontaneous
  Country: PT (occurrence: PT)
  Receive Date: 20230629
  Receipt Date: 20240116
  Transmission Date: 20240410
  Serious: Yes (Life-Threatening, Hospitalization, Other)
  Sender: FDA-Public Use
  Company Number: PT-PFIZER INC-202300229490

PATIENT
  Age: 69 Year
  Sex: Female
  Weight: 81 kg

DRUGS (4)
  1. HYDROCORTISONE SODIUM SUCCINATE [Suspect]
     Active Substance: HYDROCORTISONE SODIUM SUCCINATE
     Dosage: 200 MG
     Route: 042
  2. PANTOPRAZOLE [Suspect]
     Active Substance: PANTOPRAZOLE
     Dosage: 40 MG
     Route: 042
  3. CEFAZOLIN [Suspect]
     Active Substance: CEFAZOLIN
     Dosage: UNK
     Route: 057
  4. ROPIVACAINE [Concomitant]
     Active Substance: ROPIVACAINE
     Dosage: UNK, (5 ML INFEROTEMPORAL INJECTION AND 2 ML)

REACTIONS (3)
  - Loss of consciousness [Unknown]
  - Hypoxia [Unknown]
  - Rash [Unknown]
